FAERS Safety Report 8920740 (Version 2)
Quarter: 2013Q4

REPORT INFORMATION
  Report Type: Spontaneous
  Country: FR (occurrence: FR)
  Receive Date: 20121121
  Receipt Date: 20131030
  Transmission Date: 20140711
  Serious: Yes (Hospitalization)
  Sender: FDA-Public Use
  Company Number: FR-ROCHE-1154680

PATIENT
  Sex: Male

DRUGS (6)
  1. MABTHERA [Suspect]
     Indication: ENCEPHALITIS
     Route: 042
     Dates: start: 20120921, end: 20120928
  2. MABTHERA [Suspect]
     Route: 042
     Dates: start: 20120928
  3. SOLU-MEDROL [Suspect]
     Indication: ENCEPHALITIS
     Route: 042
     Dates: start: 20120811, end: 20120903
  4. OCTAGAM [Suspect]
     Indication: ENCEPHALITIS
     Route: 042
     Dates: start: 20120811, end: 20120903
  5. OCTAGAM [Suspect]
     Route: 042
     Dates: start: 20120827, end: 20120903
  6. INEXIUM [Concomitant]

REACTIONS (1)
  - Prostatitis [Unknown]
